FAERS Safety Report 11062697 (Version 1)
Quarter: 2015Q2

REPORT INFORMATION
  Report Type: Spontaneous
  Country: US (occurrence: US)
  Receive Date: 20150424
  Receipt Date: 20150424
  Transmission Date: 20150821
  Serious: Yes (Other)
  Sender: FDA-Public Use
  Company Number: US-ASTRAZENECA-2015SE37676

PATIENT
  Age: 25 Year
  Sex: Female

DRUGS (3)
  1. MEROPENEM. [Suspect]
     Active Substance: MEROPENEM
     Indication: PSEUDOMONAS INFECTION
     Route: 042
  2. AMIKACIN [Concomitant]
     Active Substance: AMIKACIN
     Dosage: FROM HOSPITAL DAY 150
     Route: 065
  3. MEROPENEM. [Suspect]
     Active Substance: MEROPENEM
     Indication: PSEUDOMONAS INFECTION
     Dosage: FROM HOSPITAL DAY 150
     Route: 042

REACTIONS (1)
  - Drug resistance [Not Recovered/Not Resolved]
